FAERS Safety Report 19441520 (Version 1)
Quarter: 2021Q2

REPORT INFORMATION
  Report Type: Report from Study
  Country: US (occurrence: US)
  Receive Date: 20210621
  Receipt Date: 20210621
  Transmission Date: 20210717
  Serious: No
  Sender: FDA-Public Use
  Company Number: US-BIOVITRUM-2021US1683

PATIENT
  Age: 31 Year
  Sex: Female

DRUGS (2)
  1. KINERET [Suspect]
     Active Substance: ANAKINRA
     Indication: PYREXIA
     Route: 058
     Dates: start: 20210204
  2. ATENOLOL. [Concomitant]
     Active Substance: ATENOLOL

REACTIONS (20)
  - Injection site rash [Unknown]
  - Injection site bruising [Unknown]
  - Product quality issue [Unknown]
  - Incorrect product administration duration [Unknown]
  - Inflammation [Not Recovered/Not Resolved]
  - Arthralgia [Unknown]
  - Injection site reaction [Unknown]
  - Erythema [Not Recovered/Not Resolved]
  - Vision blurred [Unknown]
  - Intentional product misuse [Unknown]
  - Injection site pain [Unknown]
  - Pruritus [Not Recovered/Not Resolved]
  - Needle issue [Unknown]
  - Injection site eczema [Unknown]
  - Syringe issue [Unknown]
  - Maternal exposure during pregnancy [Unknown]
  - Pyrexia [Recovering/Resolving]
  - Condition aggravated [Recovering/Resolving]
  - Urticaria [Not Recovered/Not Resolved]
  - Off label use [Not Recovered/Not Resolved]

NARRATIVE: CASE EVENT DATE: 20210206
